FAERS Safety Report 17915438 (Version 1)
Quarter: 2020Q2

REPORT INFORMATION
  Report Type: Spontaneous
  Country: US (occurrence: US)
  Receive Date: 20200619
  Receipt Date: 20200619
  Transmission Date: 20200714
  Serious: Yes (Death, Other)
  Sender: FDA-Public Use
  Company Number: US-AMGEN-USASP2020097538

PATIENT

DRUGS (2)
  1. CARFILZOMIB [Suspect]
     Active Substance: CARFILZOMIB
     Indication: PLASMA CELL MYELOMA
     Dosage: UNK
     Route: 065
  2. DARATUMUMAB [Suspect]
     Active Substance: DARATUMUMAB
     Indication: PLASMA CELL MYELOMA
     Dosage: 16 MILLIGRAM/KILOGRAM
     Route: 065

REACTIONS (9)
  - Organ failure [Fatal]
  - Death [Fatal]
  - Graft versus host disease [Fatal]
  - Gastroenteritis astroviral [Unknown]
  - Sepsis [Fatal]
  - Chronic graft versus host disease in intestine [Unknown]
  - Plasma cell myeloma [Fatal]
  - Pulmonary embolism [Fatal]
  - Off label use [Unknown]
